FAERS Safety Report 7807875-4 (Version None)
Quarter: 2011Q4

REPORT INFORMATION
  Report Type: 
  Country: None (occurrence: None)
  Receive Date: 20111011
  Receipt Date: 20111004
  Transmission Date: 20120403
  Serious: Yes (Disabling)
  Sender: FDA-Public Use
  Company Number: US-CELGENEUS-163-21880-11100728

PATIENT
  Sex: Female

DRUGS (8)
  1. DEXAMETHASONE [Concomitant]
     Route: 065
  2. LOSARTAN POTASSIUM AND HYDROCHLOROTHIAZIDE [Concomitant]
     Route: 065
  3. SULFAMETHOXAZOLE AND TRIMETHOPRIM DOUBLE STRENGTH [Concomitant]
     Route: 065
  4. TEKTURNA [Concomitant]
     Route: 065
  5. ACYCLOVIR [Concomitant]
     Route: 065
  6. FAMOTIDINE [Concomitant]
     Route: 065
  7. ASPIRIN [Concomitant]
     Dosage: LOW STRENGTH
     Route: 065
  8. REVLIMID [Suspect]
     Dosage: 25 MILLIGRAM
     Route: 048
     Dates: start: 20110509

REACTIONS (1)
  - ABASIA [None]
